FAERS Safety Report 16115539 (Version 1)
Quarter: 2019Q1

REPORT INFORMATION
  Report Type: Report from Study
  Country: None (occurrence: CO)
  Receive Date: 20190325
  Receipt Date: 20190325
  Transmission Date: 20190418
  Serious: Yes (Hospitalization, Other)
  Sender: FDA-Public Use
  Company Number: CO-ABBVIE-19S-036-2718533-00

PATIENT
  Age: 52 Year
  Sex: Male
  Weight: 76 kg

DRUGS (1)
  1. ZEMPLAR [Suspect]
     Active Substance: PARICALCITOL
     Indication: HYPERPARATHYROIDISM SECONDARY
     Route: 048
     Dates: start: 20180321, end: 20181018

REACTIONS (5)
  - Blood creatinine increased [Recovering/Resolving]
  - Medical device change [Recovering/Resolving]
  - Haematoma [Recovering/Resolving]
  - Inflammation [Recovering/Resolving]
  - Device damage [Recovering/Resolving]

NARRATIVE: CASE EVENT DATE: 201902
